FAERS Safety Report 10298333 (Version 1)
Quarter: 2014Q3

REPORT INFORMATION
  Report Type: Report from Study
  Country: TR (occurrence: TR)
  Receive Date: 20140711
  Receipt Date: 20140711
  Transmission Date: 20150326
  Serious: Yes (Other)
  Sender: FDA-Public Use
  Company Number: TR-ASTRAZENECA-2014SE48531

PATIENT

DRUGS (3)
  1. MIDAZOLAM [Suspect]
     Active Substance: MIDAZOLAM\MIDAZOLAM HYDROCHLORIDE
     Indication: BRONCHOSCOPY
     Dosage: 0.05 MG/KG, TWO DOSES
     Route: 042
  2. REMIFENTANIL [Suspect]
     Active Substance: REMIFENTANIL
     Indication: BRONCHOSCOPY
     Dosage: 1 UG/KG/MIN
     Route: 042
  3. PROPOFOL. [Suspect]
     Active Substance: PROPOFOL
     Indication: BRONCHOSCOPY
     Dosage: 4 MG/KG WITH 1 MG/ML OF LIDOCAINE.
     Route: 040

REACTIONS (2)
  - Agitation [Unknown]
  - Oxygen saturation decreased [Recovering/Resolving]
